FAERS Safety Report 14492530 (Version 1)
Quarter: 2018Q1

REPORT INFORMATION
  Report Type: Spontaneous
  Country: JP (occurrence: JP)
  Receive Date: 20180206
  Receipt Date: 20180206
  Transmission Date: 20180509
  Serious: Yes (Hospitalization)
  Sender: FDA-Public Use
  Company Number: JP-PFIZER INC-2018049182

PATIENT
  Age: 50 Year
  Sex: Male
  Weight: 56 kg

DRUGS (2)
  1. CAMPTO [Suspect]
     Active Substance: IRINOTECAN
     Indication: RECTAL CANCER
     Dosage: 276.2 MG, 1X/DAY (276.2 MG/BODY (165 MG/M2)), (UNKNOWN CYCLES)
     Route: 041
     Dates: start: 20170213, end: 20180105
  2. ELPLAT [Suspect]
     Active Substance: OXALIPLATIN
     Indication: RECTAL CANCER
     Dosage: 142.3 MG, 1X/DAY (142.3 MG/BODY (85 MG/M2)), (UNKNOWN CYCLES)
     Route: 041
     Dates: start: 20170213

REACTIONS (5)
  - Abdominal pain [Recovering/Resolving]
  - Neoplasm progression [Unknown]
  - Urinary tract infection [Unknown]
  - Hypersensitivity [Unknown]
  - Hydronephrosis [Unknown]

NARRATIVE: CASE EVENT DATE: 20180125
